FAERS Safety Report 18605288 (Version 1)
Quarter: 2020Q4

REPORT INFORMATION
  Report Type: Report from Study
  Country: CA (occurrence: CA)
  Receive Date: 20201211
  Receipt Date: 20201211
  Transmission Date: 20210114
  Serious: Yes (Other)
  Sender: FDA-Public Use
  Company Number: CA-TEVA-2020-CA-1855566

PATIENT
  Age: 30 Year
  Sex: Female

DRUGS (2)
  1. AJOVY [Suspect]
     Active Substance: FREMANEZUMAB-VFRM
     Indication: MIGRAINE PROPHYLAXIS
     Dosage: LAST DOSE ADMINISTRATION: 04-NOV-2020
     Route: 058
     Dates: start: 20200903
  2. ADVIL [Suspect]
     Active Substance: IBUPROFEN
     Indication: PAIN
     Route: 065

REACTIONS (7)
  - Decreased activity [Unknown]
  - Incorrect dose administered [Unknown]
  - Vein rupture [Unknown]
  - Blood disorder [Unknown]
  - Injection site haemorrhage [Unknown]
  - Torticollis [Unknown]
  - Neck pain [Unknown]

NARRATIVE: CASE EVENT DATE: 2020
